FAERS Safety Report 14068157 (Version 1)
Quarter: 2017Q4

REPORT INFORMATION
  Report Type: Spontaneous
  Country: US (occurrence: US)
  Receive Date: 20171009
  Receipt Date: 20171009
  Transmission Date: 20180321
  Serious: No
  Sender: FDA-Public Use
  Company Number: None

PATIENT
  Age: 37 Year
  Sex: Male
  Weight: 94.5 kg

DRUGS (1)
  1. BUPRENORPHINE 8MG TABLETS [Suspect]
     Active Substance: BUPRENORPHINE
     Indication: DRUG REHABILITATION
     Route: 048

REACTIONS (6)
  - Product substitution issue [None]
  - Product physical issue [None]
  - Burn oral cavity [None]
  - Nightmare [None]
  - Chemical burn [None]
  - Scar [None]

NARRATIVE: CASE EVENT DATE: 20171002
